FAERS Safety Report 11334350 (Version 3)
Quarter: 2015Q3

REPORT INFORMATION
  Report Type: Spontaneous
  Country: JP (occurrence: JP)
  Receive Date: 20150804
  Receipt Date: 20150824
  Transmission Date: 20151125
  Serious: Yes (Hospitalization, Other)
  Sender: FDA-Public Use
  Company Number: JP-009507513-1508JPN000190

PATIENT
  Age: 74 Year
  Sex: Female

DRUGS (10)
  1. BELSOMRA [Suspect]
     Active Substance: SUVOREXANT
     Indication: INSOMNIA
     Dosage: 20 MG, QD
     Route: 048
     Dates: end: 20150724
  2. BELSOMRA [Suspect]
     Active Substance: SUVOREXANT
     Dosage: 20 MG, QD
     Route: 048
     Dates: start: 20150726, end: 20150726
  3. AMLODIPINE [Concomitant]
     Active Substance: AMLODIPINE BESYLATE
     Dosage: DAILY DOSAGE UNKNOWN
     Route: 048
  4. ALPRAZOLAM. [Concomitant]
     Active Substance: ALPRAZOLAM
     Indication: INSOMNIA
     Dosage: UNK UNK, QD
     Route: 048
  5. CRESTOR [Concomitant]
     Active Substance: ROSUVASTATIN CALCIUM
     Dosage: DAILY DOSAGE UNKNOWN
     Route: 048
  6. NEXIUM [Concomitant]
     Active Substance: ESOMEPRAZOLE MAGNESIUM
     Dosage: DAILY DOSE UNKNOWN
     Route: 048
  7. MOSAPRIDE CITRATE [Concomitant]
     Active Substance: MOSAPRIDE CITRATE
     Dosage: DAILY DOSE UNKNOWN
     Route: 065
  8. BELSOMRA [Suspect]
     Active Substance: SUVOREXANT
     Dosage: 40 MG, QD
     Route: 048
     Dates: start: 20150725, end: 20150725
  9. RENIVACE [Concomitant]
     Active Substance: ENALAPRIL
     Dosage: DAILY DOSAGE UNKNOWN
     Route: 048
  10. LYRICA [Concomitant]
     Active Substance: PREGABALIN
     Dosage: DAILY DOSE UNKNOWN
     Route: 048

REACTIONS (6)
  - Spinal disorder [Unknown]
  - Intentional overdose [Unknown]
  - Insomnia [Unknown]
  - Muscular weakness [Unknown]
  - Prescribed overdose [Unknown]
  - Gait disturbance [Recovered/Resolved]

NARRATIVE: CASE EVENT DATE: 20150724
